FAERS Safety Report 9490699 (Version 3)
Quarter: 2013Q3

REPORT INFORMATION
  Report Type: Report from Study
  Country: CA (occurrence: CA)
  Receive Date: 20130830
  Receipt Date: 20130906
  Transmission Date: 20140515
  Serious: Yes (Other)
  Sender: FDA-Public Use
  Company Number: CA-ABBOTT-13P-028-1062848-00

PATIENT
  Sex: Male
  Weight: 71.28 kg

DRUGS (4)
  1. HUMIRA [Suspect]
     Indication: RHEUMATOID ARTHRITIS
     Route: 058
     Dates: start: 20090417, end: 20130118
  2. HUMIRA [Suspect]
     Dates: start: 20130818
  3. TYLENOL [Concomitant]
     Indication: PROCEDURAL PAIN
     Route: 048
     Dates: start: 2013
  4. GABAPENTIN 1 A PHARMA [Concomitant]
     Indication: NEUROPATHY PERIPHERAL
     Route: 048

REACTIONS (5)
  - Muscle tightness [Recovered/Resolved]
  - Neuropathy peripheral [Not Recovered/Not Resolved]
  - Procedural pain [Unknown]
  - Rheumatoid arthritis [Not Recovered/Not Resolved]
  - Drug ineffective [Unknown]
